FAERS Safety Report 24630714 (Version 3)
Quarter: 2025Q1

REPORT INFORMATION
  Report Type: Spontaneous
  Country: FR (occurrence: FR)
  Receive Date: 20241118
  Receipt Date: 20250306
  Transmission Date: 20250408
  Serious: Yes (Other)
  Sender: NOVARTIS
  Company Number: FR-002147023-NVSC2024FR220636

PATIENT
  Age: 88 Year
  Sex: Female

DRUGS (1)
  1. BEOVU [Suspect]
     Active Substance: BROLUCIZUMAB-DBLL
     Indication: Age-related macular degeneration
     Dosage: UNK, QD (6 ML/ 0.05 ML) (ONE INJECTION)
     Route: 031
     Dates: start: 20240814

REACTIONS (5)
  - Retinal vasculitis [Not Recovered/Not Resolved]
  - Retinal ischaemia [Unknown]
  - Vitritis [Unknown]
  - Retinal artery occlusion [Unknown]
  - Visual acuity reduced [Unknown]

NARRATIVE: CASE EVENT DATE: 20241023
